FAERS Safety Report 6932165-1 (Version None)
Quarter: 2010Q3

REPORT INFORMATION
  Report Type: 
  Country: None (occurrence: None)
  Receive Date: 20100819
  Receipt Date: 20100811
  Transmission Date: 20110219
  Serious: Yes (Other)
  Sender: FDA-Public Use
  Company Number: B0669451B

PATIENT

DRUGS (3)
  1. CEFUROXIME [Suspect]
     Indication: BRONCHITIS
     Dates: start: 20100604, end: 20100611
  2. RHINOCORT [Suspect]
     Indication: BRONCHITIS
     Dates: start: 20100604
  3. REVAXIS [Suspect]
     Dates: start: 20100422, end: 20100422

REACTIONS (2)
  - DRUG EXPOSURE DURING PREGNANCY [None]
  - LIMB REDUCTION DEFECT [None]
